FAERS Safety Report 23450900 (Version 4)
Quarter: 2024Q1

REPORT INFORMATION
  Report Type: Spontaneous
  Country: CA (occurrence: CA)
  Receive Date: 20240129
  Receipt Date: 20240219
  Transmission Date: 20240410
  Serious: Yes (Death, Hospitalization, Other)
  Sender: FDA-Public Use
  Company Number: CA-GILEAD-2024-0659873

PATIENT
  Age: 46 Year
  Sex: Male
  Weight: 76.2 kg

DRUGS (13)
  1. EPCLUSA [Suspect]
     Active Substance: SOFOSBUVIR\VELPATASVIR
     Indication: Product used for unknown indication
     Dosage: UNK
     Route: 048
     Dates: start: 20240109, end: 20240115
  2. FUROSEMIDE [Concomitant]
     Active Substance: FUROSEMIDE
  3. DIVALPROEX SODIUM [Concomitant]
     Active Substance: DIVALPROEX SODIUM
  4. AMIODARONE [Concomitant]
     Active Substance: AMIODARONE
  5. MAGNESIUM [Concomitant]
     Active Substance: MAGNESIUM
  6. SODIUM BICARBONATE [Concomitant]
     Active Substance: SODIUM BICARBONATE
  7. VANCOMYCIN [Concomitant]
     Active Substance: VANCOMYCIN
  8. MEROPENEM [Concomitant]
     Active Substance: MEROPENEM
  9. LEVOPHED [Concomitant]
     Active Substance: NOREPINEPHRINE BITARTRATE
  10. GABAPENTIN [Concomitant]
     Active Substance: GABAPENTIN
  11. CLOBAZAM [Concomitant]
     Active Substance: CLOBAZAM
  12. NAPROXEN SODIUM;OMEPRAZOLE [Concomitant]
  13. BRIVARACETAM [Concomitant]
     Active Substance: BRIVARACETAM

REACTIONS (2)
  - Sepsis [Fatal]
  - Epilepsy [Fatal]

NARRATIVE: CASE EVENT DATE: 20240115
